FAERS Safety Report 6169802-8 (Version None)
Quarter: 2009Q2

REPORT INFORMATION
  Report Type: 
  Country: None (occurrence: None)
  Receive Date: 20090428
  Receipt Date: 20090128
  Transmission Date: 20091009
  Serious: No
  Sender: FDA-Public Use
  Company Number: US-AMGEN-KDL330756

PATIENT
  Sex: Male

DRUGS (1)
  1. SENSIPAR [Suspect]
     Indication: HYPERPARATHYROIDISM SECONDARY
     Dates: start: 20081101

REACTIONS (4)
  - BLOOD PARATHYROID HORMONE ABNORMAL [None]
  - GASTROINTESTINAL DISORDER [None]
  - HYPERCALCAEMIA [None]
  - TREATMENT NONCOMPLIANCE [None]
